FAERS Safety Report 14573162 (Version 18)
Quarter: 2019Q1

REPORT INFORMATION
  Report Type: Spontaneous
  Country: CA (occurrence: CA)
  Receive Date: 20180226
  Receipt Date: 20190311
  Transmission Date: 20190417
  Serious: Yes (Hospitalization, Other)
  Sender: FDA-Public Use
  Company Number: CA-CELLTRION INC.-2017CA007355

PATIENT

DRUGS (22)
  1. INFLECTRA [Suspect]
     Active Substance: INFLIXIMAB-DYYB
     Dosage: 400 MG, 0, 2, 6, THEN EVERY 8 WEEKS
     Route: 042
     Dates: start: 20170831
  2. TRAZODONE [Concomitant]
     Active Substance: TRAZODONE HYDROCHLORIDE
     Dosage: 300 MG, OD HS
  3. METHYLPREDNISOLONE. [Concomitant]
     Active Substance: METHYLPREDNISOLONE
     Dosage: UNK, TID
     Route: 042
     Dates: start: 2018
  4. INFLECTRA [Suspect]
     Active Substance: INFLIXIMAB-DYYB
     Dosage: 400 MG, 0, 2, 6, THEN EVERY 8 WEEKS
     Route: 042
     Dates: start: 20180216
  5. MEZAVANT [Concomitant]
     Active Substance: MESALAMINE
     Dosage: 1.2 G - 2 TABLETS, 2400 MG BY MOUTH ONCE DAILY
     Route: 048
  6. NABILONE [Concomitant]
     Active Substance: NABILONE
     Dosage: 1 MG, TID
  7. INFLECTRA [Suspect]
     Active Substance: INFLIXIMAB-DYYB
     Dosage: 400 MG, 0, 2, 6, THEN EVERY 8 WEEKS
     Route: 042
     Dates: start: 20180803
  8. INFLECTRA [Suspect]
     Active Substance: INFLIXIMAB-DYYB
     Indication: COLITIS ULCERATIVE
     Dosage: 400 MG, 0, 2, 6, THEN EVERY 8 WEEKS
     Route: 042
     Dates: start: 20170520
  9. INFLECTRA [Suspect]
     Active Substance: INFLIXIMAB-DYYB
     Dosage: 400 MG, 0, 2, 6, THEN EVERY 8 WEEKS
     Route: 042
     Dates: start: 20171222
  10. INFLECTRA [Suspect]
     Active Substance: INFLIXIMAB-DYYB
     Dosage: 400 MG, 0, 2, 6, THEN EVERY 8 WEEKS
     Route: 042
     Dates: start: 20180413
  11. INFLECTRA [Suspect]
     Active Substance: INFLIXIMAB-DYYB
     Dosage: 400 MG, 0, 2, 6, THEN EVERY 8 WEEKS
     Route: 042
     Dates: start: 20180810
  12. INFLECTRA [Suspect]
     Active Substance: INFLIXIMAB-DYYB
     Dosage: 400 MG, 0, 2, 6, THEN EVERY 8 WEEKS
     Route: 042
     Dates: start: 20190225
  13. PANTOPRAZOLE [Concomitant]
     Active Substance: PANTOPRAZOLE
     Dosage: 40 MG, BID
  14. HYDROMORPHONE [Concomitant]
     Active Substance: HYDROMORPHONE
     Dosage: 1 1/2-6 MG TABLET EVERY 4-6 HOURS THEN 1 1/2-4 MG TABLET EVERY 4-6 HOURS
  15. MORPHINE [Concomitant]
     Active Substance: MORPHINE
     Indication: PAIN
     Dosage: UNK
  16. INFLECTRA [Suspect]
     Active Substance: INFLIXIMAB-DYYB
     Dosage: 400 MG, 0, 2, 6, THEN EVERY 8 WEEKS
     Route: 042
     Dates: start: 20181002
  17. CYCLOBENZAPRINE. [Concomitant]
     Active Substance: CYCLOBENZAPRINE
     Dosage: 10 MG, PRN (TAKE IT OCCASIONALLY)
     Route: 048
  18. TYLENOL WITH CODEINE [Concomitant]
     Active Substance: ACETAMINOPHEN\CODEINE PHOSPHATE
     Indication: HEADACHE
     Dosage: UNK, PRN
  19. INFLECTRA [Suspect]
     Active Substance: INFLIXIMAB-DYYB
     Dosage: 400 MG, 0, 2, 6, THEN EVERY 8 WEEKS
     Route: 042
     Dates: start: 20180608
  20. INFLECTRA [Suspect]
     Active Substance: INFLIXIMAB-DYYB
     Dosage: 400 MG, 0, 2, 6, THEN EVERY 8 WEEKS
     Route: 042
     Dates: start: 20181130
  21. PREDNISONE. [Concomitant]
     Active Substance: PREDNISONE
     Dosage: 25 MG, QD THEN 40MG QD
     Route: 065
  22. BUSCOPAN [Concomitant]
     Active Substance: BUTYLSCOPOLAMINE BROMIDE
     Dosage: 1-10 MG TABLET EVERY 4 TO 6 HOURS AS NEEDED

REACTIONS (38)
  - Back pain [Unknown]
  - Rhinorrhoea [Unknown]
  - Paraesthesia [Unknown]
  - Condition aggravated [Not Recovered/Not Resolved]
  - Back injury [Unknown]
  - Product use issue [Unknown]
  - Migraine [Not Recovered/Not Resolved]
  - Oropharyngeal pain [Unknown]
  - Oral infection [Unknown]
  - Irritable bowel syndrome [Unknown]
  - Localised infection [Not Recovered/Not Resolved]
  - Localised infection [Recovered/Resolved]
  - Eating disorder [Not Recovered/Not Resolved]
  - Malaise [Not Recovered/Not Resolved]
  - Diarrhoea [Not Recovered/Not Resolved]
  - Chapped lips [Not Recovered/Not Resolved]
  - Fatigue [Unknown]
  - Food intolerance [Unknown]
  - Oxygen saturation decreased [Unknown]
  - Pain [Not Recovered/Not Resolved]
  - Contusion [Unknown]
  - Headache [Not Recovered/Not Resolved]
  - Constipation [Unknown]
  - Faecal calprotectin increased [Unknown]
  - Anxiety [Unknown]
  - Jaw disorder [Unknown]
  - Arthritis [Unknown]
  - Pain in extremity [Unknown]
  - Weight increased [Unknown]
  - Breath odour [Unknown]
  - Cough [Unknown]
  - Pain in extremity [Not Recovered/Not Resolved]
  - Inappropriate schedule of product administration [Unknown]
  - Injection site extravasation [Unknown]
  - Tooth disorder [Unknown]
  - Neck injury [Unknown]
  - Pain in jaw [Unknown]
  - Weight decreased [Unknown]

NARRATIVE: CASE EVENT DATE: 201705
